FAERS Safety Report 7070998-4 (Version None)
Quarter: 2010Q4

REPORT INFORMATION
  Report Type: 
  Country: None (occurrence: None)
  Receive Date: 20101029
  Receipt Date: 20101026
  Transmission Date: 20110411
  Serious: Yes (Hospitalization)
  Sender: FDA-Public Use
  Company Number: US-BRISTOL-MYERS SQUIBB COMPANY-15353519

PATIENT
  Age: 54 Year
  Sex: Male

DRUGS (2)
  1. COUMADIN [Suspect]
  2. AVONEX [Suspect]
     Indication: MULTIPLE SCLEROSIS
     Dosage: POWDER FROM 1996-2003 ALSO LIQUID 30MCG IM/WK 2003 THEN POWDER 30MCG IM/WK SINCE 2003
     Route: 030
     Dates: start: 19960101

REACTIONS (2)
  - BLOOD DISORDER [None]
  - HEPATIC FUNCTION ABNORMAL [None]
